FAERS Safety Report 6396770-6 (Version None)
Quarter: 2009Q4

REPORT INFORMATION
  Report Type: 
  Country: None (occurrence: None)
  Receive Date: 20091012
  Receipt Date: 20090817
  Transmission Date: 20100525
  Serious: No
  Sender: FDA-Public Use
  Company Number: US-ASTRAZENECA-2009SE08467

PATIENT
  Age: 76 Year
  Sex: Male
  Weight: 70.3 kg

DRUGS (11)
  1. SYMBICORT [Suspect]
     Indication: CHRONIC OBSTRUCTIVE PULMONARY DISEASE
     Route: 055
     Dates: start: 20090810
  2. POLYGLYCOL [Concomitant]
  3. CARVADOPALEVADOPA [Concomitant]
  4. LIPITOR [Concomitant]
  5. COUMADIN [Concomitant]
  6. SYNTHROID [Concomitant]
  7. DILTIAZEM [Concomitant]
  8. AVADART [Concomitant]
  9. COMBIVENT [Concomitant]
  10. DOUNEBS [Concomitant]
  11. PREDNISONE [Concomitant]

REACTIONS (2)
  - MUSCLE SPASMS [None]
  - TENDON PAIN [None]
